FAERS Safety Report 15048659 (Version 2)
Quarter: 2018Q3

REPORT INFORMATION
  Report Type: Spontaneous
  Country: ES (occurrence: ES)
  Receive Date: 20180622
  Receipt Date: 20180723
  Transmission Date: 20181010
  Serious: Yes (Other)
  Sender: FDA-Public Use
  Company Number: ES-TEVA-2018-ES-912083

PATIENT
  Age: 35 Year
  Sex: Female

DRUGS (5)
  1. PROCARBAZINA HIDROCLORURO (651CH) [Suspect]
     Active Substance: PROCARBAZINE HYDROCHLORIDE
     Indication: ASTROCYTOMA
     Route: 048
     Dates: start: 20171021, end: 20171103
  2. VINCRISTINA SULFATO (809SU) [Suspect]
     Active Substance: VINCRISTINE SULFATE
     Indication: ASTROCYTOMA
     Route: 065
     Dates: start: 20171021, end: 20171103
  3. METAMIZOL (111A) [Concomitant]
     Active Substance: METAMIZOL SODIUM
     Route: 048
  4. METAMIZOL (111A) [Concomitant]
     Active Substance: METAMIZOL SODIUM
     Dates: end: 20171025
  5. LOMUSTINA (378A) [Concomitant]
     Active Substance: LOMUSTINE
     Indication: ASTROCYTOMA
     Route: 048
     Dates: start: 20171013

REACTIONS (2)
  - Hypertransaminasaemia [Recovered/Resolved]
  - Rash pruritic [Recovered/Resolved]

NARRATIVE: CASE EVENT DATE: 20171107
